FAERS Safety Report 24274538 (Version 1)
Quarter: 2024Q3

REPORT INFORMATION
  Report Type: Spontaneous
  Country: CN (occurrence: CN)
  Receive Date: 20240902
  Receipt Date: 20240902
  Transmission Date: 20241017
  Serious: Yes (Hospitalization)
  Sender: BEIGENE
  Company Number: CN-BEIGENE-BGN-2024-012681

PATIENT

DRUGS (2)
  1. TISLELIZUMAB [Suspect]
     Active Substance: TISLELIZUMAB
     Indication: Lung carcinoma cell type unspecified recurrent
     Dosage: 200 MILLIGRAM, Q3WK
     Route: 041
     Dates: start: 20240601
  2. SODIUM CHLORIDE [Concomitant]
     Active Substance: SODIUM CHLORIDE
     Indication: Vehicle solution use
     Dosage: 100 MILLILITER, Q3WK
     Route: 041
     Dates: start: 20240601

REACTIONS (2)
  - Mouth ulceration [Recovering/Resolving]
  - Rash [Recovering/Resolving]

NARRATIVE: CASE EVENT DATE: 20240803
